FAERS Safety Report 12456050 (Version 1)
Quarter: 2016Q2

REPORT INFORMATION
  Report Type: Spontaneous
  Country: AU (occurrence: AU)
  Receive Date: 20160610
  Receipt Date: 20160610
  Transmission Date: 20160815
  Serious: Yes (Other)
  Sender: FDA-Public Use
  Company Number: AU-CONCORDIA PHARMACEUTICALS INC.-CO-PL-AU-2015-041

PATIENT
  Age: 51 Year
  Sex: Female

DRUGS (16)
  1. AZATHIOPRINE. [Suspect]
     Active Substance: AZATHIOPRINE
     Indication: ANGIOEDEMA
  2. CYCLOPHOSPHAMIDE. [Suspect]
     Active Substance: CYCLOPHOSPHAMIDE
     Indication: ANGIOEDEMA
  3. METHOTREXATE [Suspect]
     Active Substance: METHOTREXATE
     Indication: URTICARIA
  4. PREDNISONE. [Suspect]
     Active Substance: PREDNISONE
     Indication: ANGIOEDEMA
  5. CYCLOSPORIN [Suspect]
     Active Substance: CYCLOSPORINE
     Indication: URTICARIA
  6. DAPSONE. [Suspect]
     Active Substance: DAPSONE
     Indication: URTICARIA
  7. MONTELUKAST [Suspect]
     Active Substance: MONTELUKAST SODIUM
     Indication: URTICARIA
  8. PLAQUENIL [Suspect]
     Active Substance: HYDROXYCHLOROQUINE SULFATE
     Indication: URTICARIA
  9. PLAQUENIL [Suspect]
     Active Substance: HYDROXYCHLOROQUINE SULFATE
     Indication: ANGIOEDEMA
  10. METHOTREXATE [Suspect]
     Active Substance: METHOTREXATE
     Indication: ANGIOEDEMA
  11. MONTELUKAST [Suspect]
     Active Substance: MONTELUKAST SODIUM
     Indication: ANGIOEDEMA
  12. PREDNISONE. [Suspect]
     Active Substance: PREDNISONE
     Indication: URTICARIA
  13. CYCLOSPORIN [Suspect]
     Active Substance: CYCLOSPORINE
     Indication: ANGIOEDEMA
  14. DAPSONE. [Suspect]
     Active Substance: DAPSONE
     Indication: ANGIOEDEMA
  15. AZATHIOPRINE. [Suspect]
     Active Substance: AZATHIOPRINE
     Indication: URTICARIA
  16. CYCLOPHOSPHAMIDE. [Suspect]
     Active Substance: CYCLOPHOSPHAMIDE
     Indication: URTICARIA

REACTIONS (7)
  - Drug dependence [None]
  - Ill-defined disorder [Unknown]
  - Cushing^s syndrome [Unknown]
  - Off label use [None]
  - Diabetes mellitus [Unknown]
  - Treatment failure [None]
  - Hypertension [Unknown]
